FAERS Safety Report 4903709-6 (Version None)
Quarter: 2006Q1

REPORT INFORMATION
  Report Type: 
  Country: None (occurrence: None)
  Receive Date: 20060202
  Receipt Date: 20060119
  Transmission Date: 20060701
  Serious: Yes (Other)
  Sender: FDA-Public Use
  Company Number: 8014513

PATIENT
  Age: 4 Year
  Sex: Female

DRUGS (1)
  1. KEPPRA [Suspect]
     Dates: start: 20051001

REACTIONS (2)
  - DEVELOPMENTAL DELAY [None]
  - PRECOCIOUS PUBERTY [None]
